FAERS Safety Report 4417811-9 (Version None)
Quarter: 2004Q3

REPORT INFORMATION
  Report Type: 
  Country: None (occurrence: None)
  Receive Date: 20040803
  Receipt Date: 20040723
  Transmission Date: 20050211
  Serious: Yes (Death, Life-Threatening)
  Sender: FDA-Public Use
  Company Number: 2004225183FR

PATIENT
  Age: 56 Year
  Sex: Female

DRUGS (1)
  1. AROMASIN [Suspect]
     Indication: BREAST CANCER
     Dosage: 1 DF, QD, ORAL
     Route: 048
     Dates: start: 20030915

REACTIONS (5)
  - CARDIAC ARREST [None]
  - MALAISE [None]
  - PALLOR [None]
  - PULMONARY EMBOLISM [None]
  - RESPIRATORY FAILURE [None]
